FAERS Safety Report 15779984 (Version 1)
Quarter: 2019Q1

REPORT INFORMATION
  Report Type: Spontaneous
  Country: IT (occurrence: IT)
  Receive Date: 20190102
  Receipt Date: 20190102
  Transmission Date: 20190417
  Serious: Yes (Other)
  Sender: FDA-Public Use
  Company Number: IT-ACCORD-098866

PATIENT
  Age: 20 Year
  Sex: Male
  Weight: 44 kg

DRUGS (7)
  1. FLEBOCORTID RICHTER [Concomitant]
     Indication: PROPHYLAXIS
     Route: 042
  2. CARBOPLATIN. [Suspect]
     Active Substance: CARBOPLATIN
     Indication: NEUROFIBROSARCOMA
     Route: 042
     Dates: start: 20171009
  3. ZOVIRAX [Concomitant]
     Active Substance: ACYCLOVIR
     Indication: HERPES ZOSTER
     Route: 048
     Dates: start: 20171014, end: 20171020
  4. GABAPENTIN. [Concomitant]
     Active Substance: GABAPENTIN
     Indication: NEUROPATHY PERIPHERAL
     Route: 048
     Dates: start: 20170713
  5. TRIMETON [Concomitant]
     Active Substance: CHLORPHENIRAMINE MALEATE
     Indication: PROPHYLAXIS
     Route: 042
     Dates: start: 20171009, end: 20171011
  6. VEPESID [Suspect]
     Active Substance: ETOPOSIDE
     Indication: NEUROFIBROSARCOMA
     Route: 042
     Dates: start: 20171009
  7. ZOFRAN [Concomitant]
     Active Substance: ONDANSETRON HYDROCHLORIDE
     Indication: PROPHYLAXIS
     Route: 042
     Dates: start: 20171009, end: 20171011

REACTIONS (7)
  - Hypercholesterolaemia [Recovering/Resolving]
  - Anaemia [Recovering/Resolving]
  - Off label use [Unknown]
  - Neurotoxicity [Recovering/Resolving]
  - Herpes zoster [Recovered/Resolved]
  - Hepatic enzyme increased [Recovering/Resolving]
  - Thrombocytopenia [Recovering/Resolving]

NARRATIVE: CASE EVENT DATE: 20171009
